FAERS Safety Report 15533610 (Version 1)
Quarter: 2018Q4

REPORT INFORMATION
  Report Type: Spontaneous
  Country: US (occurrence: US)
  Receive Date: 20181019
  Receipt Date: 20181019
  Transmission Date: 20190205
  Serious: No
  Sender: FDA-Public Use
  Company Number: US-DSJP-DSU-2018-125162

PATIENT
  Age: 75 Year
  Sex: Male
  Weight: 92.63 kg

DRUGS (2)
  1. WELCHOL [Suspect]
     Active Substance: COLESEVELAM HYDROCHLORIDE
     Indication: IRRITABLE BOWEL SYNDROME
     Dosage: 3.75 G, QD
     Route: 048
     Dates: start: 2018, end: 2018
  2. WELCHOL [Suspect]
     Active Substance: COLESEVELAM HYDROCHLORIDE
     Dosage: 3.75 G, QD
     Route: 048
     Dates: start: 2018, end: 20180617

REACTIONS (3)
  - Off label use [Recovered/Resolved]
  - Pruritus generalised [Recovered/Resolved]
  - Irritable bowel syndrome [Not Recovered/Not Resolved]

NARRATIVE: CASE EVENT DATE: 2018
